FAERS Safety Report 12069518 (Version 1)
Quarter: 2016Q1

REPORT INFORMATION
  Report Type: Spontaneous
  Country: US (occurrence: None)
  Receive Date: 20160211
  Receipt Date: 20160211
  Transmission Date: 20160526
  Serious: Yes (Death, Life-Threatening, Hospitalization)
  Sender: FDA-Public Use
  Company Number: None

PATIENT
  Age: 78 Year
  Sex: Female
  Weight: 87.8 kg

DRUGS (5)
  1. AMIODARONE [Suspect]
     Active Substance: AMIODARONE
     Indication: OFF LABEL USE
     Dosage: TWO 200 MG TABLETS OR TOTAL OF 400 MG PILLS TWICE DAILY FOR A TOTAL OF 800 MG BY MOUTH
     Route: 048
     Dates: start: 20141025, end: 20141125
  2. PROPAFENONE (RYTHMOL) [Concomitant]
  3. LOVASTATIN. [Concomitant]
     Active Substance: LOVASTATIN
  4. AMIODARONE [Suspect]
     Active Substance: AMIODARONE
     Indication: ATRIAL FIBRILLATION
     Dosage: TWO 200 MG TABLETS OR TOTAL OF 400 MG PILLS TWICE DAILY FOR A TOTAL OF 800 MG BY MOUTH
     Route: 048
     Dates: start: 20141025, end: 20141125
  5. HCTZ [Concomitant]
     Active Substance: HYDROCHLOROTHIAZIDE

REACTIONS (11)
  - Cough [None]
  - Haemoptysis [None]
  - Swelling [None]
  - Asthenia [None]
  - Pulmonary toxicity [None]
  - Fluid retention [None]
  - Dyspnoea [None]
  - Crepitations [None]
  - Tremor [None]
  - Insomnia [None]
  - Fatigue [None]

NARRATIVE: CASE EVENT DATE: 20141025
